FAERS Safety Report 20519899 (Version 5)
Quarter: 2022Q2

REPORT INFORMATION
  Report Type: Report from Study
  Country: FR (occurrence: FR)
  Receive Date: 20220225
  Receipt Date: 20220505
  Transmission Date: 20220720
  Serious: Yes (Death, Hospitalization, Other)
  Sender: FDA-Public Use
  Company Number: FR-GLAXOSMITHKLINE-FR2022EME034495

PATIENT
  Age: 72 Year
  Sex: Male
  Weight: 90 kg

DRUGS (2)
  1. BELANTAMAB MAFODOTIN [Suspect]
     Active Substance: BELANTAMAB MAFODOTIN
     Indication: Plasma cell myeloma
     Dosage: 255 MG
     Route: 042
     Dates: start: 20201221, end: 20210607
  2. BELANTAMAB MAFODOTIN [Suspect]
     Active Substance: BELANTAMAB MAFODOTIN
     Dosage: 232 MG
     Route: 042
     Dates: start: 20201221, end: 20210607

REACTIONS (7)
  - Fall [Fatal]
  - Loss of consciousness [Fatal]
  - Condition aggravated [Fatal]
  - Death [Fatal]
  - Staphylococcal sepsis [Recovered/Resolved]
  - Diarrhoea [Recovered/Resolved]
  - Keratopathy [Not Recovered/Not Resolved]

NARRATIVE: CASE EVENT DATE: 20210218
